FAERS Safety Report 11251865 (Version 1)
Quarter: 2015Q3

REPORT INFORMATION
  Report Type: Spontaneous
  Country: US (occurrence: US)
  Receive Date: 20150708
  Receipt Date: 20150708
  Transmission Date: 20151125
  Serious: Yes (Other)
  Sender: FDA-Public Use
  Company Number: US-ELI_LILLY_AND_COMPANY-US201202002564

PATIENT
  Age: 75 Year
  Sex: Female
  Weight: 57.82 kg

DRUGS (15)
  1. ALIMTA [Suspect]
     Active Substance: PEMETREXED DISODIUM
     Dosage: 400 MG/M2, OTHER
     Route: 042
     Dates: end: 20120130
  2. VITAMIN B12 [Concomitant]
     Active Substance: CYANOCOBALAMIN
     Dosage: 1000 UG, UNK
     Route: 030
     Dates: start: 20120105, end: 20120105
  3. FOLIC ACID. [Concomitant]
     Active Substance: FOLIC ACID
     Dosage: 1 MG, UNK
     Route: 048
     Dates: start: 20120105, end: 20120222
  4. CALCIUM [Concomitant]
     Active Substance: CALCIUM
  5. VITAMIN D [Concomitant]
     Active Substance: CHOLECALCIFEROL
  6. DEXAMETHASONE. [Concomitant]
     Active Substance: DEXAMETHASONE
     Dosage: 8 MG, UNK
     Route: 048
     Dates: start: 20120110, end: 20120202
  7. SPIRIVA [Concomitant]
     Active Substance: TIOTROPIUM BROMIDE MONOHYDRATE
  8. ALIMTA [Suspect]
     Active Substance: PEMETREXED DISODIUM
     Indication: NON-SMALL CELL LUNG CANCER STAGE IV
     Dosage: 790 MG, OTHER
     Route: 042
     Dates: start: 20120110
  9. MULTAQ [Concomitant]
     Active Substance: DRONEDARONE
     Dosage: UNK
  10. AVASTIN [Concomitant]
     Active Substance: BEVACIZUMAB
     Indication: NON-SMALL CELL LUNG CANCER
  11. MULTIVITAMIN [Concomitant]
     Active Substance: VITAMINS
  12. ZOCOR [Concomitant]
     Active Substance: SIMVASTATIN
  13. XANAX [Concomitant]
     Active Substance: ALPRAZOLAM
  14. FISH OIL [Concomitant]
     Active Substance: FISH OIL
  15. CARDIZEM [Concomitant]
     Active Substance: DILTIAZEM HYDROCHLORIDE

REACTIONS (1)
  - Fatigue [Recovered/Resolved]
